FAERS Safety Report 16719874 (Version 1)
Quarter: 2019Q3

REPORT INFORMATION
  Report Type: Spontaneous
  Country: US (occurrence: US)
  Receive Date: 20190820
  Receipt Date: 20190820
  Transmission Date: 20191005
  Serious: No
  Sender: FDA-Public Use
  Company Number: US-PFIZER INC-2019351681

PATIENT
  Age: 78 Year
  Sex: Female

DRUGS (1)
  1. ZYVOX [Suspect]
     Active Substance: LINEZOLID
     Dosage: 600 MG, UNK

REACTIONS (1)
  - Drug ineffective [Unknown]
